FAERS Safety Report 23690731 (Version 2)
Quarter: 2025Q2

REPORT INFORMATION
  Report Type: Spontaneous
  Country: US (occurrence: US)
  Receive Date: 20240401
  Receipt Date: 20250515
  Transmission Date: 20250717
  Serious: Yes (Hospitalization)
  Sender: AUROBINDO
  Company Number: US-AUROBINDO-AUR-APL-2024-013536

PATIENT
  Age: 23 Year
  Sex: Female

DRUGS (3)
  1. SILDENAFIL [Suspect]
     Active Substance: SILDENAFIL
     Indication: Pulmonary arterial hypertension
     Route: 065
  2. AMBRISENTAN [Suspect]
     Active Substance: AMBRISENTAN
     Indication: Pulmonary arterial hypertension
     Route: 065
  3. TREPROSTINIL [Suspect]
     Active Substance: TREPROSTINIL
     Indication: Pulmonary arterial hypertension
     Route: 042

REACTIONS (1)
  - Drug ineffective [Unknown]
